FAERS Safety Report 12918311 (Version 1)
Quarter: 2016Q4

REPORT INFORMATION
  Report Type: Spontaneous
  Country: HR (occurrence: HR)
  Receive Date: 20161107
  Receipt Date: 20161107
  Transmission Date: 20170207
  Serious: Yes (Hospitalization, Other)
  Sender: FDA-Public Use
  Company Number: HR-TEVA-707639ACC

PATIENT
  Age: 35 Year
  Sex: Male

DRUGS (1)
  1. OLANDIX 5 MG RASPADLJIVE TABLETE ZA USTA [Suspect]
     Active Substance: OLANZAPINE
     Route: 048
     Dates: start: 20160313

REACTIONS (5)
  - Somnolence [Unknown]
  - Intentional overdose [Unknown]
  - Suicide attempt [Unknown]
  - Agitation [Unknown]
  - Altered state of consciousness [Unknown]

NARRATIVE: CASE EVENT DATE: 20160313
